FAERS Safety Report 4534413-4 (Version None)
Quarter: 2004Q4

REPORT INFORMATION
  Report Type: 
  Country: None (occurrence: None)
  Receive Date: 20041222
  Receipt Date: 20041216
  Transmission Date: 20050328
  Serious: Yes (Hospitalization)
  Sender: FDA-Public Use
  Company Number: US-JNJFOC-20041205214

PATIENT
  Sex: Male
  Weight: 95.26 kg

DRUGS (1)
  1. DURAGESIC [Suspect]
     Route: 062
     Dates: start: 20041111

REACTIONS (4)
  - DIARRHOEA [None]
  - DYSPNOEA [None]
  - GROIN INFECTION [None]
  - MULTIPLE SCLEROSIS [None]
